FAERS Safety Report 6698749-3 (Version None)
Quarter: 2010Q2

REPORT INFORMATION
  Report Type: 
  Country: None (occurrence: None)
  Receive Date: 20100427
  Receipt Date: 20100415
  Transmission Date: 20101027
  Serious: Yes (Other)
  Sender: FDA-Public Use
  Company Number: PHHY2010US24497

PATIENT
  Sex: Female

DRUGS (7)
  1. AFINITOR [Suspect]
     Dosage: UNK
     Dates: start: 20100306
  2. NEXAVAR [Suspect]
  3. HYDROCHLOROTHIAZIDE [Concomitant]
  4. VITAMINS [Concomitant]
  5. CALCIUM [Concomitant]
  6. FOLIC ACID [Concomitant]
  7. RANITIDINE [Concomitant]

REACTIONS (11)
  - ANAEMIA [None]
  - BLISTER [None]
  - BLOOD ALBUMIN ABNORMAL [None]
  - BLOOD BILIRUBIN ABNORMAL [None]
  - BURNING SENSATION [None]
  - DRY SKIN [None]
  - HEARING IMPAIRED [None]
  - PALMAR-PLANTAR ERYTHRODYSAESTHESIA SYNDROME [None]
  - PARAESTHESIA [None]
  - RASH GENERALISED [None]
  - SKIN DISCOLOURATION [None]
